FAERS Safety Report 9456335 (Version 1)
Quarter: 2013Q3

REPORT INFORMATION
  Report Type: Spontaneous
  Country: US (occurrence: US)
  Receive Date: 20130813
  Receipt Date: 20130813
  Transmission Date: 20140515
  Serious: No
  Sender: FDA-Public Use
  Company Number: US-PFIZER INC-2013233019

PATIENT
  Age: 55 Year
  Sex: Female
  Weight: 67.1 kg

DRUGS (2)
  1. ESTRING [Suspect]
     Indication: DYSPAREUNIA
     Dosage: 2 MG, UNK
     Route: 067
  2. ESTRING [Suspect]
     Indication: VULVOVAGINAL PAIN

REACTIONS (2)
  - Product quality issue [Unknown]
  - Abdominal pain [Unknown]
